FAERS Safety Report 19716471 (Version 1)
Quarter: 2021Q3

REPORT INFORMATION
  Report Type: Spontaneous
  Country: US (occurrence: US)
  Receive Date: 20210818
  Receipt Date: 20210818
  Transmission Date: 20211014
  Serious: No
  Sender: FDA-Public Use
  Company Number: US-PFIZER INC-202100941954

PATIENT
  Age: 44 Year
  Sex: Male

DRUGS (1)
  1. DILANTIN [Suspect]
     Active Substance: PHENYTOIN
     Dosage: 100 MG, 3X/DAY, TAKE 1 CAPSULE (100 MG TOTAL) BY MOUTH TID
     Route: 048

REACTIONS (1)
  - Oral pain [Unknown]
